FAERS Safety Report 5644234-7 (Version None)
Quarter: 2008Q1

REPORT INFORMATION
  Report Type: 
  Country: None (occurrence: None)
  Receive Date: 20080227
  Receipt Date: 20080227
  Transmission Date: 20080703
  Serious: No
  Sender: FDA-Public Use
  Company Number: None

PATIENT
  Age: 53 Month
  Sex: Female
  Weight: 69.4003 kg

DRUGS (1)
  1. CHANTIX [Suspect]
     Indication: SMOKING CESSATION THERAPY
     Dosage: 1 TABLET 2 X DAY TWICE NOT SURE OF EXACT DATES
     Dates: start: 20070101, end: 20070829

REACTIONS (4)
  - DIZZINESS [None]
  - FEELING ABNORMAL [None]
  - PALPITATIONS [None]
  - PANIC ATTACK [None]
